FAERS Safety Report 5958445-4 (Version None)
Quarter: 2008Q4

REPORT INFORMATION
  Report Type: 
  Country: None (occurrence: None)
  Receive Date: 20081119
  Receipt Date: 20081117
  Transmission Date: 20090506
  Serious: Yes (Other)
  Sender: FDA-Public Use
  Company Number: DE-TEVA-180600ISR

PATIENT
  Age: 71 Year
  Sex: Male

DRUGS (2)
  1. FINASTERIDE [Suspect]
     Dates: start: 20040701
  2. TAMSULOSIN HCL [Suspect]
     Dates: start: 20040701

REACTIONS (2)
  - BREAST CANCER [None]
  - GYNAECOMASTIA [None]
